FAERS Safety Report 8334585 (Version 5)
Quarter: 2013Q4

REPORT INFORMATION
  Report Type: Spontaneous
  Country: IE (occurrence: IE)
  Receive Date: 20120112
  Receipt Date: 20131210
  Transmission Date: 20140711
  Serious: Yes (Other)
  Sender: FDA-Public Use
  Company Number: IE-JNJFOC-20120102063

PATIENT
  Age: 22 Year
  Sex: Female
  Weight: 50 kg

DRUGS (2)
  1. STELARA [Suspect]
     Indication: PSORIASIS
     Route: 058
     Dates: start: 20110324
  2. STELARA [Suspect]
     Indication: GUTTATE PSORIASIS
     Route: 058
     Dates: start: 20110324

REACTIONS (3)
  - Asthma [Recovered/Resolved]
  - Upper respiratory tract infection [Recovered/Resolved]
  - Pharyngitis [Recovered/Resolved]
